FAERS Safety Report 17246028 (Version 1)
Quarter: 2020Q1

REPORT INFORMATION
  Report Type: Spontaneous
  Country: ES (occurrence: ES)
  Receive Date: 20200108
  Receipt Date: 20200108
  Transmission Date: 20200409
  Serious: Yes (Death, Other)
  Sender: FDA-Public Use
  Company Number: ES-TEVA-2020-ES-1164011

PATIENT
  Age: 9 Month
  Sex: Male

DRUGS (1)
  1. MYCOPHENOLATE MOFETIL. [Suspect]
     Active Substance: MYCOPHENOLATE MOFETIL
     Dosage: 1 GRAM
     Route: 048
     Dates: start: 20190204

REACTIONS (8)
  - Gastrointestinal necrosis [Fatal]
  - Lactic acidosis [Unknown]
  - Intestinal ischaemia [Unknown]
  - Metabolic acidosis [Unknown]
  - Gastritis haemorrhagic [Unknown]
  - General physical health deterioration [Unknown]
  - Abdominal distension [Unknown]
  - Accidental overdose [Fatal]

NARRATIVE: CASE EVENT DATE: 20190204
